FAERS Safety Report 10736108 (Version 1)
Quarter: 2015Q1

REPORT INFORMATION
  Report Type: Spontaneous
  Country: SE (occurrence: None)
  Receive Date: 20150121
  Receipt Date: 20150121
  Transmission Date: 20150721
  Serious: Yes (Hospitalization)
  Sender: FDA-Public Use
  Company Number: SE-001614

PATIENT
  Age: 53 Year
  Sex: Female

DRUGS (8)
  1. MORPHINE [Concomitant]
     Active Substance: MORPHINE
  2. ESCITALOPRAM [Suspect]
     Active Substance: ESCITALOPRAM OXALATE
  3. CODEINE [Concomitant]
     Active Substance: CODEINE
  4. REVESTIVE [Suspect]
     Active Substance: TEDUGLUTIDE
     Indication: SHORT-BOWEL SYNDROME
     Route: 058
     Dates: start: 20141216
  5. IMODIUM [Concomitant]
     Active Substance: LOPERAMIDE HYDROCHLORIDE
  6. MIRTAZAPIN [Concomitant]
     Active Substance: MIRTAZAPINE
  7. INNOHEP [Concomitant]
     Active Substance: TINZAPARIN SODIUM
  8. IMOVANE [Concomitant]
     Active Substance: ZOPICLONE

REACTIONS (8)
  - Alanine aminotransferase increased [None]
  - Urine output decreased [None]
  - Aspartate aminotransferase increased [None]
  - Ileal stenosis [None]
  - Hypophagia [None]
  - Fluid intake reduced [None]
  - Blood creatinine increased [None]
  - Gastrointestinal stoma output increased [None]

NARRATIVE: CASE EVENT DATE: 201501
